FAERS Safety Report 9743023 (Version 1)
Quarter: 2013Q4

REPORT INFORMATION
  Report Type: Report from Study
  Country: IT (occurrence: IT)
  Receive Date: 20131210
  Receipt Date: 20131210
  Transmission Date: 20140711
  Serious: Yes (Other)
  Sender: FDA-Public Use
  Company Number: IT-CELGENEUS-083-21880-13115279

PATIENT
  Age: 56 Year
  Sex: Female

DRUGS (5)
  1. REVLIMID [Suspect]
     Indication: PLASMA CELL MYELOMA
     Route: 048
     Dates: start: 20120202
  2. REVLIMID [Suspect]
     Route: 048
     Dates: start: 20120205
  3. REVLIMID [Suspect]
     Route: 048
     Dates: start: 20130702, end: 20130822
  4. REVLIMID [Suspect]
     Route: 048
     Dates: start: 20130909
  5. DEXAMETHASONE [Concomitant]
     Indication: PRODUCT USED FOR UNKNOWN INDICATION
     Route: 065

REACTIONS (3)
  - Nephropathy toxic [Unknown]
  - Plasma cell myeloma [Unknown]
  - Thrombocytopenia [Unknown]
